FAERS Safety Report 10761988 (Version 1)
Quarter: 2015Q1

REPORT INFORMATION
  Report Type: Spontaneous
  Country: US (occurrence: US)
  Receive Date: 20150204
  Receipt Date: 20150204
  Transmission Date: 20150721
  Serious: Yes (Hospitalization)
  Sender: FDA-Public Use
  Company Number: US-009507513-1501USA012162

PATIENT
  Sex: Male

DRUGS (3)
  1. AMPHOTERICIN B (+) CHOLESTEROL (+) DISTEAROYLPHOSPHATIDYLGLYCEROL (+) [Concomitant]
     Active Substance: AMPHOTERICIN B\CHOLESTEROL
     Dosage: UNK
  2. CASPOFUNGIN ACETATE [Concomitant]
     Active Substance: CASPOFUNGIN ACETATE
  3. NOXAFIL [Suspect]
     Active Substance: POSACONAZOLE
     Indication: PNEUMONIA
     Dosage: 150 MG, QID
     Dates: start: 20141227

REACTIONS (2)
  - Incorrect route of drug administration [Unknown]
  - Nausea [Not Recovered/Not Resolved]
